FAERS Safety Report 20002805 (Version 1)
Quarter: 2021Q4

REPORT INFORMATION
  Report Type: Spontaneous
  Country: US (occurrence: US)
  Receive Date: 20211028
  Receipt Date: 20211028
  Transmission Date: 20220303
  Serious: Yes (Death, Hospitalization)
  Sender: FDA-Public Use
  Company Number: US-JNJFOC-20211027259

PATIENT
  Age: 47 Year
  Sex: Female
  Weight: 48 kg

DRUGS (2)
  1. ACETAMINOPHEN [Suspect]
     Active Substance: ACETAMINOPHEN
     Indication: Product used for unknown indication
     Route: 048
  2. PAXIL [Concomitant]
     Active Substance: PAROXETINE HYDROCHLORIDE
     Indication: Product used for unknown indication
     Dosage: 25MG PER DAY FOR AN UNKNOWN DURATION
     Route: 065

REACTIONS (7)
  - Acute hepatic failure [Fatal]
  - Sepsis [Fatal]
  - Pleural effusion [Fatal]
  - Enterobacter infection [Fatal]
  - Overdose [Fatal]
  - Portal vein thrombosis [Fatal]
  - Tachycardia [Fatal]

NARRATIVE: CASE EVENT DATE: 20030918
